FAERS Safety Report 4564258-0 (Version None)
Quarter: 2005Q1

REPORT INFORMATION
  Report Type: 
  Country: None (occurrence: None)
  Receive Date: 20050128
  Receipt Date: 20040716
  Transmission Date: 20050727
  Serious: No
  Sender: FDA-Public Use
  Company Number: US-GLAXOSMITHKLINE-A0518635A

PATIENT
  Sex: Female

DRUGS (3)
  1. COMBIVIR [Suspect]
     Dosage: 1TAB TWICE PER DAY
     Route: 048
     Dates: start: 19990101
  2. CRIXIVAN [Concomitant]
  3. HEPATITIS B VACCINE [Concomitant]

REACTIONS (3)
  - DIARRHOEA [None]
  - DRUG EXPOSURE DURING PREGNANCY [None]
  - IMMUNE SYSTEM DISORDER [None]
